FAERS Safety Report 22168153 (Version 2)
Quarter: 2024Q2

REPORT INFORMATION
  Report Type: Spontaneous
  Country: US (occurrence: US)
  Receive Date: 20230403
  Receipt Date: 20240412
  Transmission Date: 20240716
  Serious: No
  Sender: FDA-Public Use
  Company Number: US-BAYER-2023A039608

PATIENT
  Sex: Male

DRUGS (1)
  1. GADAVIST [Suspect]
     Active Substance: GADOBUTROL
     Indication: Magnetic resonance imaging
     Dosage: UNK UNK, ONCE
     Dates: start: 20230224, end: 20230224

REACTIONS (1)
  - Drug ineffective [None]

NARRATIVE: CASE EVENT DATE: 20230224
